FAERS Safety Report 14205319 (Version 1)
Quarter: 2017Q4

REPORT INFORMATION
  Report Type: Spontaneous
  Country: IT (occurrence: IT)
  Receive Date: 20171120
  Receipt Date: 20171120
  Transmission Date: 20180321
  Serious: Yes (Other)
  Sender: FDA-Public Use
  Company Number: IT-PFIZER INC-2017493954

PATIENT
  Age: 56 Year
  Sex: Female
  Weight: 120 kg

DRUGS (2)
  1. DOCETAXEL. [Suspect]
     Active Substance: DOCETAXEL
     Indication: BREAST CANCER METASTATIC
     Dosage: 140 MG, CYCLIC
     Route: 042
     Dates: start: 20160125, end: 20160125
  2. IGROSELES [Concomitant]
     Active Substance: ATENOLOL\CHLORTHALIDONE
     Dosage: 62 MG, UNK

REACTIONS (3)
  - Arthralgia [Recovering/Resolving]
  - Swelling face [Recovering/Resolving]
  - Asthenia [Recovering/Resolving]

NARRATIVE: CASE EVENT DATE: 20160130
